FAERS Safety Report 19763308 (Version 1)
Quarter: 2021Q3

REPORT INFORMATION
  Report Type: Spontaneous
  Country: US (occurrence: US)
  Receive Date: 20210830
  Receipt Date: 20210830
  Transmission Date: 20211014
  Serious: No
  Sender: FDA-Public Use
  Company Number: US-ENDO PHARMACEUTICALS INC-2021-002836

PATIENT
  Age: 58 Year
  Sex: Female

DRUGS (3)
  1. ROBAXIN [Suspect]
     Active Substance: METHOCARBAMOL
     Indication: PAIN IN EXTREMITY
     Dosage: UNK UNKNOWN, UNKNOWN
     Route: 065
     Dates: start: 202104
  2. VACCINES [Concomitant]
     Active Substance: UNSPECIFIED INGREDIENT
     Indication: COVID-19 IMMUNISATION
     Dosage: UNK UNKNOWN, 1ST DOSE
     Route: 065
     Dates: start: 20210406
  3. VACCINES [Concomitant]
     Active Substance: UNSPECIFIED INGREDIENT
     Dosage: UNK UNKNOWN, 2ND DOSE
     Route: 065
     Dates: start: 20210427

REACTIONS (1)
  - Drug ineffective [Unknown]

NARRATIVE: CASE EVENT DATE: 202104
